FAERS Safety Report 12223024 (Version 2)
Quarter: 2016Q2

REPORT INFORMATION
  Report Type: Spontaneous
  Country: US (occurrence: US)
  Receive Date: 20160330
  Receipt Date: 20160531
  Transmission Date: 20160815
  Serious: Yes (Hospitalization)
  Sender: FDA-Public Use
  Company Number: US-ASTRAZENECA-2016SE32241

PATIENT
  Age: 23741 Day
  Sex: Male
  Weight: 75.8 kg

DRUGS (4)
  1. GLIPIZIDE. [Concomitant]
     Active Substance: GLIPIZIDE
     Indication: TYPE 2 DIABETES MELLITUS
  2. METFORMIN [Concomitant]
     Active Substance: METFORMIN HYDROCHLORIDE
     Indication: TYPE 2 DIABETES MELLITUS
  3. VICTOZA [Concomitant]
     Active Substance: LIRAGLUTIDE
  4. FARXIGA [Suspect]
     Active Substance: DAPAGLIFLOZIN PROPANEDIOL
     Indication: TYPE 2 DIABETES MELLITUS
     Route: 048
     Dates: end: 20160221

REACTIONS (2)
  - Scrotal abscess [Unknown]
  - Necrotising fasciitis [Recovering/Resolving]

NARRATIVE: CASE EVENT DATE: 20160221
